FAERS Safety Report 11497587 (Version 2)
Quarter: 2015Q4

REPORT INFORMATION
  Report Type: Spontaneous
  Country: US (occurrence: US)
  Receive Date: 20150911
  Receipt Date: 20151002
  Transmission Date: 20160304
  Serious: Yes (Hospitalization, Other)
  Sender: FDA-Public Use
  Company Number: US-PFIZER INC-2015294039

PATIENT
  Sex: Male
  Weight: 82 kg

DRUGS (2)
  1. METOPROLOL [Concomitant]
     Active Substance: METOPROLOL
     Indication: HYPERTENSION
     Dosage: UNK
     Route: 048
  2. INLYTA [Suspect]
     Active Substance: AXITINIB
     Indication: RENAL CANCER STAGE IV
     Dosage: 5 MG, 2X/DAY (ONE TABLET IN MORNING AND ONE IN EVENING)
     Route: 048

REACTIONS (11)
  - Hypoglycaemia [Unknown]
  - Hypertension [Unknown]
  - Pulmonary congestion [Unknown]
  - Malaise [Unknown]
  - Blood chloride increased [Unknown]
  - Nausea [Unknown]
  - Vomiting [Unknown]
  - Pulmonary oedema [Unknown]
  - Fatigue [Unknown]
  - Headache [Unknown]
  - Hypotension [Unknown]
